FAERS Safety Report 6926526-4 (Version None)
Quarter: 2010Q3

REPORT INFORMATION
  Report Type: 
  Country: None (occurrence: None)
  Receive Date: 20100816
  Receipt Date: 20100723
  Transmission Date: 20110219
  Serious: No
  Sender: FDA-Public Use
  Company Number: US-ABBOTT-10P-163-0644979-00

PATIENT
  Sex: Female
  Weight: 43.584 kg

DRUGS (9)
  1. SIMCOR [Suspect]
     Indication: BLOOD CHOLESTEROL ABNORMAL
     Dosage: 500/20MG AT BEDTIME
     Dates: start: 20100401, end: 20100501
  2. SIMCOR [Suspect]
     Indication: HIGH DENSITY LIPOPROTEIN INCREASED
  3. SIMCOR [Suspect]
     Indication: LOW DENSITY LIPOPROTEIN DECREASED
  4. SIMCOR [Suspect]
     Indication: LABORATORY TEST ABNORMAL
  5. ASPIRIN [Concomitant]
     Indication: PRODUCT USED FOR UNKNOWN INDICATION
     Dosage: QHS
  6. CELEBREX [Concomitant]
     Indication: JOINT ARTHROPLASTY
  7. BONIVA [Concomitant]
     Indication: OSTEOPOROSIS
     Dosage: Q MONTHLY
  8. CALCIUM + VITAMIN D [Concomitant]
     Indication: PRODUCT USED FOR UNKNOWN INDICATION
  9. FISH OIL [Concomitant]
     Indication: PRODUCT USED FOR UNKNOWN INDICATION

REACTIONS (5)
  - DYSKINESIA [None]
  - INITIAL INSOMNIA [None]
  - MIDDLE INSOMNIA [None]
  - MUSCLE TWITCHING [None]
  - RASH [None]
